FAERS Safety Report 9876984 (Version 1)
Quarter: 2014Q1

REPORT INFORMATION
  Report Type: Report from Study
  Country: US (occurrence: US)
  Receive Date: 20140206
  Receipt Date: 20140206
  Transmission Date: 20141002
  Serious: Yes (Other)
  Sender: FDA-Public Use
  Company Number: US-ALEXION PHARMACEUTICALS INC.-A201400356

PATIENT
  Sex: Female

DRUGS (6)
  1. SOLIRIS [Suspect]
     Indication: HAEMOLYTIC URAEMIC SYNDROME
     Dosage: 1200 MG, Q2W
     Route: 042
     Dates: start: 20120519
  2. CELEBREX [Concomitant]
     Indication: PAIN IN EXTREMITY
     Dosage: UNK
  3. SERTRALINE [Concomitant]
     Dosage: UNK
  4. NAMENDA [Concomitant]
     Indication: AMNESIA
     Dosage: UNK
  5. CIPROFLOXACIN [Concomitant]
     Indication: PRODUCT USED FOR UNKNOWN INDICATION
     Dosage: UNK
     Dates: start: 20120523
  6. LASIX M [Concomitant]
     Indication: PRODUCT USED FOR UNKNOWN INDICATION
     Dosage: 120 MG, QD
     Route: 042
     Dates: start: 20120603

REACTIONS (3)
  - Amnesia [Unknown]
  - Depression [Unknown]
  - Pain in extremity [Unknown]
